FAERS Safety Report 17133969 (Version 1)
Quarter: 2019Q4

REPORT INFORMATION
  Report Type: Spontaneous
  Country: US (occurrence: US)
  Receive Date: 20191209
  Receipt Date: 20191209
  Transmission Date: 20200122
  Serious: Yes (Hospitalization, Congenital Anomaly)
  Sender: FDA-Public Use
  Company Number: None

PATIENT
  Sex: Female

DRUGS (3)
  1. STELARA [Suspect]
     Active Substance: USTEKINUMAB
     Indication: ARTHRITIS
     Dosage: ?          OTHER FREQUENCY:EVERY 8 WEEKS;?
     Route: 058
     Dates: start: 20180628
  2. EVAMIST [Concomitant]
     Active Substance: ESTRADIOL
     Dates: start: 20191209
  3. PROGESTERONE POW [Concomitant]
     Dates: start: 20191209

REACTIONS (1)
  - Small intestinal obstruction [None]
